FAERS Safety Report 13191323 (Version 1)
Quarter: 2017Q1

REPORT INFORMATION
  Report Type: Spontaneous
  Country: FR (occurrence: FR)
  Receive Date: 20170207
  Receipt Date: 20170207
  Transmission Date: 20170428
  Serious: Yes (Disabling, Other)
  Sender: FDA-Public Use
  Company Number: FR-AMGEN-FRASP2017019265

PATIENT
  Age: 80 Year
  Sex: Male

DRUGS (14)
  1. BETASERC [Concomitant]
     Active Substance: BETAHISTINE
     Dosage: 24 MG, 2X/DAY, IN THE MORNING AND IN THE EVENING
     Route: 048
     Dates: end: 20161231
  2. ZAMUDOL [Concomitant]
     Active Substance: TRAMADOL HYDROCHLORIDE
     Dosage: 50 MG, 2X/DAY
     Route: 048
     Dates: end: 20161230
  3. LEVOTHYROX [Concomitant]
     Active Substance: LEVOTHYROXINE
     Dosage: 75 UG, 1X/DAY
     Route: 048
  4. METHOTREXATE SODIUM. [Suspect]
     Active Substance: METHOTREXATE SODIUM
     Indication: PSORIASIS
     Dosage: UNK
     Route: 065
     Dates: start: 201310, end: 201502
  5. LOXEN L P [Concomitant]
     Active Substance: NICARDIPINE HYDROCHLORIDE
     Dosage: 50 MG, 2X/DAY
     Route: 048
  6. KARDEGIC [Concomitant]
     Active Substance: ASPIRIN LYSINE
     Dosage: 75 MG, 1X/DAY
     Route: 048
  7. TEMESTA [Concomitant]
     Active Substance: LORAZEPAM
     Dosage: 1 DF, DAILY, AT BEDTIME
     Route: 048
     Dates: end: 20161230
  8. ENBREL [Suspect]
     Active Substance: ETANERCEPT
     Indication: PSORIASIS
     Dosage: 50 MG, 2X/WEEK
     Route: 058
     Dates: start: 201502, end: 201503
  9. FOZITEC [Concomitant]
     Active Substance: FOSINOPRIL
     Dosage: 10 MG, 1X/DAY
     Route: 048
  10. HUMIRA [Suspect]
     Active Substance: ADALIMUMAB
     Indication: PSORIASIS
     Dosage: 40 MG, 1X/15DAYS
     Route: 058
     Dates: start: 201509, end: 201612
  11. NICORANDIL [Concomitant]
     Active Substance: NICORANDIL
     Dosage: 10 MG, 2X/DAY
     Route: 048
  12. PARACETAMOL [Concomitant]
     Active Substance: ACETAMINOPHEN
     Indication: PAIN
     Dosage: 1 G, 3X/DAY
     Route: 048
  13. FOZITEC [Concomitant]
     Active Substance: FOSINOPRIL
     Dosage: 0.5 DF, 1X/DAY
     Route: 048
  14. LANTUS [Concomitant]
     Active Substance: INSULIN GLARGINE
     Dosage: 8 IU, 1X/DAY
     Route: 048
     Dates: start: 20161230

REACTIONS (3)
  - Sjogren^s syndrome [Unknown]
  - Amyloidosis [Unknown]
  - Chronic inflammatory demyelinating polyradiculoneuropathy [Not Recovered/Not Resolved]

NARRATIVE: CASE EVENT DATE: 2016
